FAERS Safety Report 24254635 (Version 1)
Quarter: 2024Q3

REPORT INFORMATION
  Report Type: Spontaneous
  Country: US (occurrence: US)
  Receive Date: 20240827
  Receipt Date: 20240827
  Transmission Date: 20241016
  Serious: No
  Sender: TARO
  Company Number: US-TARO PHARMACEUTICALS USA INC.-2023TAR00997

PATIENT

DRUGS (1)
  1. TERBINAFINE [Suspect]
     Active Substance: TERBINAFINE
     Indication: Fungal infection
     Dosage: UNK, USING QUITE A BIT - USED ALMOST A WHOLE TUBE YESTERDAY, TOPICAL TO SIDES OF BOTH LEGS, STOMACH,
     Route: 061
     Dates: start: 20230914

REACTIONS (2)
  - Nausea [Not Recovered/Not Resolved]
  - Product use issue [Unknown]

NARRATIVE: CASE EVENT DATE: 20230915
